FAERS Safety Report 8765465 (Version 4)
Quarter: 2012Q4

REPORT INFORMATION
  Report Type: 
  Country: JP (occurrence: JP)
  Receive Date: 20120903
  Receipt Date: 20120910
  Transmission Date: 20130627
  Serious: No
  Sender: FDA-Public Use
  Company Number: JP-PFIZER INC-2012191599

PATIENT
  Age: 41 Year
  Sex: Female

DRUGS (4)
  1. HALCION [Suspect]
     Indication: INSOMNIA
     Dosage: 0.25 mg, daily
     Route: 048
  2. DOGMATYL [Suspect]
     Dosage: 50 mg, daily
     Route: 048
  3. ROHYPNOL [Suspect]
     Dosage: 4 mg, daily
     Route: 048
  4. ZESTROMIN [Suspect]
     Dosage: 0.5 mg, daily
     Route: 048

REACTIONS (1)
  - Vulvovaginal candidiasis [Unknown]
